FAERS Safety Report 7249246-8 (Version None)
Quarter: 2011Q1

REPORT INFORMATION
  Report Type: 
  Country: None (occurrence: None)
  Receive Date: 20110128
  Receipt Date: 20101116
  Transmission Date: 20110831
  Serious: Yes (Other)
  Sender: FDA-Public Use
  Company Number: US-BAYER-201024386NA

PATIENT
  Sex: Female
  Weight: 89 kg

DRUGS (7)
  1. ASCORBIC ACID [Concomitant]
     Dosage: UNK
     Dates: start: 20000101, end: 20100101
  2. YASMIN [Suspect]
     Indication: CONTRACEPTION
     Dosage: UNK UNK, QD
     Route: 048
     Dates: start: 20031101, end: 20071001
  3. ANTIBIOTICS [Concomitant]
     Dosage: UNK
     Dates: start: 20000101, end: 20100101
  4. FLUOXETINE [Concomitant]
     Indication: DEPRESSION
     Dosage: 20 MG, UNK
     Dates: start: 20050901, end: 20080401
  5. MOTRIN [Concomitant]
     Dosage: UNK
     Dates: start: 20000101, end: 20100101
  6. ADVIL LIQUI-GELS [Concomitant]
     Dosage: UNK
     Dates: start: 20000101, end: 20100101
  7. POTASSIUM [POTASSIUM] [Concomitant]
     Dosage: UNK
     Dates: start: 20000101, end: 20100101

REACTIONS (7)
  - DIARRHOEA [None]
  - CHOLECYSTITIS CHRONIC [None]
  - INSOMNIA [None]
  - CHOLELITHIASIS [None]
  - ABDOMINAL PAIN UPPER [None]
  - GASTROOESOPHAGEAL REFLUX DISEASE [None]
  - VOMITING [None]
